FAERS Safety Report 7312677-1 (Version None)
Quarter: 2011Q1

REPORT INFORMATION
  Report Type: 
  Country: None (occurrence: None)
  Receive Date: 20110224
  Receipt Date: 20101103
  Transmission Date: 20110831
  Serious: No
  Sender: FDA-Public Use
  Company Number: US-ASTRAZENECA-2010SE52344

PATIENT

DRUGS (1)
  1. VIMOVO [Suspect]
     Indication: ARTHRALGIA
     Dosage: 500MG/20 MG BID
     Route: 048
     Dates: start: 20100101, end: 20100101

REACTIONS (1)
  - RASH PRURITIC [None]
